FAERS Safety Report 17418931 (Version 1)
Quarter: 2020Q1

REPORT INFORMATION
  Report Type: Spontaneous
  Country: US (occurrence: US)
  Receive Date: 20200214
  Receipt Date: 20200214
  Transmission Date: 20200409
  Serious: Yes (Other)
  Sender: FDA-Public Use
  Company Number: US-AMGEN-USASP2020020242

PATIENT
  Age: 82 Year
  Sex: Female

DRUGS (1)
  1. PROLIA [Suspect]
     Active Substance: DENOSUMAB
     Indication: OSTEOPOROSIS POSTMENOPAUSAL
     Dosage: 60 MILLIGRAM, Q6MO
     Route: 065
     Dates: start: 2018

REACTIONS (6)
  - Breast enlargement [Unknown]
  - Pelvic congestion [Unknown]
  - Ovarian cyst [Unknown]
  - Renal cyst [Unknown]
  - Swelling [Unknown]
  - Irritable bowel syndrome [Unknown]

NARRATIVE: CASE EVENT DATE: 2018
